FAERS Safety Report 19782821 (Version 2)
Quarter: 2021Q3

REPORT INFORMATION
  Report Type: Spontaneous
  Country: JP (occurrence: JP)
  Receive Date: 20210902
  Receipt Date: 20210923
  Transmission Date: 20211014
  Serious: Yes (Hospitalization, Other)
  Sender: FDA-Public Use
  Company Number: JP-SUNOVION-2021DSP013151

PATIENT

DRUGS (12)
  1. SERENACE [Suspect]
     Active Substance: HALOPERIDOL
     Dosage: 7.5 MG, QD
     Route: 048
  2. ESZOPICLONE. [Suspect]
     Active Substance: ESZOPICLONE
     Indication: SCHIZOPHRENIA
     Dosage: 1 MG, QD
     Route: 048
  3. SERENACE [Suspect]
     Active Substance: HALOPERIDOL
     Indication: SCHIZOPHRENIA
     Dosage: 20 MG, QD
     Route: 042
  4. OLANZAPINE. [Suspect]
     Active Substance: OLANZAPINE
     Indication: SCHIZOPHRENIA
     Dosage: 20 MG, QD
     Route: 048
  5. ETIZOLAM [Suspect]
     Active Substance: ETIZOLAM
     Indication: SCHIZOPHRENIA
     Dosage: 3 MG, QD
     Route: 048
  6. ARIPIPRAZOLE. [Suspect]
     Active Substance: ARIPIPRAZOLE
     Indication: SCHIZOPHRENIA
     Dosage: 24 MG, QD
     Route: 048
  7. FLUDECASIN [Suspect]
     Active Substance: FLUPHENAZINE DECANOATE
     Indication: SCHIZOPHRENIA
     Dosage: 25 MG, Q4WEEKS
     Route: 030
  8. FLUDECASIN [Suspect]
     Active Substance: FLUPHENAZINE DECANOATE
     Dosage: 50 MG, Q4WEEKS
     Route: 030
  9. AKINETON [Suspect]
     Active Substance: BIPERIDEN HYDROCHLORIDE
     Indication: SCHIZOPHRENIA
     Dosage: 3 MG, QD
     Route: 048
  10. RILMAZAFONE HYDROCHLORIDE [Suspect]
     Active Substance: RILMAZAFONE HYDROCHLORIDE
     Indication: SCHIZOPHRENIA
     Dosage: 4 MG, QD
     Route: 048
  11. SERENACE [Suspect]
     Active Substance: HALOPERIDOL
     Indication: SCHIZOPHRENIA
     Dosage: 48 MG, QD
     Route: 048
  12. BARNETIL [Suspect]
     Active Substance: SULTOPRIDE HYDROCHLORIDE
     Indication: SCHIZOPHRENIA
     Dosage: 1500 MG, QD
     Route: 048

REACTIONS (6)
  - Gait disturbance [Recovered/Resolved]
  - Diet refusal [Recovered/Resolved]
  - Polydipsia [Unknown]
  - Drug ineffective [Recovered/Resolved]
  - Aversion [Recovered/Resolved]
  - Schizophrenia [Recovered/Resolved]
